FAERS Safety Report 5505606-4 (Version None)
Quarter: 2007Q4

REPORT INFORMATION
  Report Type: 
  Country: None (occurrence: None)
  Receive Date: 20071102
  Receipt Date: 20071023
  Transmission Date: 20080405
  Serious: Yes (Hospitalization, Disabling, Other)
  Sender: FDA-Public Use
  Company Number: FR-PFIZER INC-2007014658

PATIENT
  Sex: Female
  Weight: 44 kg

DRUGS (1)
  1. CHAMPIX [Suspect]
     Indication: SMOKING CESSATION THERAPY
     Dosage: TEXT:1 DOSE FORM
     Route: 048
     Dates: start: 20070219, end: 20070223

REACTIONS (17)
  - ABNORMAL DREAMS [None]
  - AFFECTIVE DISORDER [None]
  - COGNITIVE DISORDER [None]
  - CONFUSIONAL STATE [None]
  - CRYING [None]
  - DAYDREAMING [None]
  - DECREASED INTEREST [None]
  - DEPRESSION [None]
  - FEAR [None]
  - HALLUCINATION, AUDITORY [None]
  - HYPERACUSIS [None]
  - INSOMNIA [None]
  - MENSTRUAL DISORDER [None]
  - PANIC ATTACK [None]
  - PROSTRATION [None]
  - TEMPERATURE INTOLERANCE [None]
  - TRANCE [None]
